FAERS Safety Report 12392743 (Version 1)
Quarter: 2016Q2

REPORT INFORMATION
  Report Type: Spontaneous
  Country: FR (occurrence: FR)
  Receive Date: 20160523
  Receipt Date: 20160523
  Transmission Date: 20160815
  Serious: Yes (Hospitalization)
  Sender: FDA-Public Use
  Company Number: FR-009507513-2008SP012710

PATIENT
  Age: 72 Year
  Sex: Female

DRUGS (9)
  1. TIORFAN [Suspect]
     Active Substance: RACECADOTRIL
     Indication: PRODUCT USED FOR UNKNOWN INDICATION
     Route: 048
  2. ULTRA LEVURE [Suspect]
     Active Substance: SACCHAROMYCES CEREVISIAE
     Indication: COLITIS
     Route: 048
  3. AUGMENTIN [Suspect]
     Active Substance: AMOXICILLIN\CLAVULANATE POTASSIUM
     Indication: COLITIS
     Route: 048
     Dates: start: 20070914, end: 20070924
  4. DEBRIDAT [Suspect]
     Active Substance: TRIMEBUTINE MALEATE
     Indication: COLITIS
     Route: 048
     Dates: start: 20070914, end: 20070924
  5. MOTILYO [Suspect]
     Active Substance: DOMPERIDONE
     Indication: PRODUCT USED FOR UNKNOWN INDICATION
     Route: 048
  6. ZYPREXA [Suspect]
     Active Substance: OLANZAPINE
     Indication: PSYCHOTIC DISORDER
     Route: 048
  7. IMOVANE [Suspect]
     Active Substance: ZOPICLONE
     Indication: PRODUCT USED FOR UNKNOWN INDICATION
     Route: 048
  8. DIPROSONE [Suspect]
     Active Substance: BETAMETHASONE DIPROPIONATE
  9. DEPAKINE CHRONO [Suspect]
     Active Substance: VALPROATE SODIUM
     Indication: EPILEPSY
     Route: 048

REACTIONS (1)
  - Rash maculo-papular [Recovered/Resolved]

NARRATIVE: CASE EVENT DATE: 20070926
